FAERS Safety Report 9788102 (Version 1)
Quarter: 2013Q4

REPORT INFORMATION
  Report Type: Spontaneous
  Country: FR (occurrence: FR)
  Receive Date: 20131230
  Receipt Date: 20131230
  Transmission Date: 20140711
  Serious: Yes (Death)
  Sender: FDA-Public Use
  Company Number: FR-SA-2013SA133258

PATIENT
  Age: 80 Year
  Sex: Male

DRUGS (11)
  1. FASTURTEC [Suspect]
     Indication: TUMOUR LYSIS SYNDROME
     Dosage: STRENGTH :1.5 MG/ML?FORM: POWDER FOR INJECTABLE SOLUTION
     Route: 042
     Dates: start: 20131024, end: 20131024
  2. MABTHERA [Suspect]
     Indication: MANTLE CELL LYMPHOMA
     Dosage: FREQUENCY: OVER 15 MIN
     Route: 042
     Dates: start: 20131025, end: 20131025
  3. LEVACT [Suspect]
     Indication: MANTLE CELL LYMPHOMA
     Dosage: FORM : POWDER FOR INJECTABLE SOLUTION?STRENGTH:2.5 MG/ML
     Route: 042
     Dates: start: 20131025, end: 20131025
  4. SOLUMEDROL [Suspect]
     Indication: MANTLE CELL LYMPHOMA
     Route: 042
     Dates: start: 20131025, end: 20131025
  5. ZOPHREN [Suspect]
     Indication: PROPHYLAXIS OF NAUSEA AND VOMITING
     Dosage: STRENGTH : 2MG/ML
     Route: 042
     Dates: start: 20131025, end: 20131025
  6. PRAVASTATIN SODIUM [Concomitant]
  7. LASILIX [Concomitant]
  8. XYZALL [Concomitant]
  9. CALCIPARINE [Concomitant]
     Route: 058
  10. FLECAINE [Concomitant]
  11. DISCOTRINE [Concomitant]
     Route: 062

REACTIONS (1)
  - Death [Fatal]
